FAERS Safety Report 6599685-3 (Version None)
Quarter: 2010Q1

REPORT INFORMATION
  Report Type: 
  Country: None (occurrence: None)
  Receive Date: 20100224
  Receipt Date: 20100212
  Transmission Date: 20100710
  Serious: Yes (Hospitalization)
  Sender: FDA-Public Use
  Company Number: US-ELI_LILLY_AND_COMPANY-US200912001101

PATIENT
  Sex: Female

DRUGS (10)
  1. ZYPREXA [Suspect]
     Indication: BIPOLAR I DISORDER
     Dosage: 15 MG, DAILY (1/D)
     Route: 065
     Dates: end: 20090101
  2. ZYPREXA [Suspect]
     Dosage: 10 MG, DAILY (1/D)
     Route: 065
     Dates: start: 20090701
  3. ZYPREXA [Suspect]
     Dosage: 30 MG, DAILY (1/D)
     Route: 065
     Dates: start: 20090701
  4. ZYPREXA [Suspect]
     Dosage: 15 MG, DAILY (1/D)
     Route: 065
     Dates: start: 20090801
  5. ZYPREXA [Suspect]
     Dosage: 7.5 MG, DAILY (1/D)
     Route: 065
     Dates: start: 20090101, end: 20090101
  6. PRAVASTATIN [Concomitant]
     Dosage: UNK, UNKNOWN
     Route: 065
  7. LEVOTHYROXINE SODIUM [Concomitant]
     Dosage: UNK, UNKNOWN
     Route: 065
  8. LITHIUM [Concomitant]
     Dosage: 600 MG, UNKNOWN
     Route: 065
  9. OMEPRAZOLE [Concomitant]
     Dosage: UNK, UNKNOWN
     Route: 065
  10. DEPAKOTE [Concomitant]
     Dosage: UNK, UNKNOWN
     Route: 065
     Dates: start: 20090101, end: 20090101

REACTIONS (7)
  - BALANCE DISORDER [None]
  - BLOOD GLUCOSE INCREASED [None]
  - DELUSION [None]
  - GAIT DISTURBANCE [None]
  - MANIA [None]
  - OVERDOSE [None]
  - WEIGHT INCREASED [None]
